FAERS Safety Report 10221132 (Version 4)
Quarter: 2015Q1

REPORT INFORMATION
  Report Type: Spontaneous
  Country: US (occurrence: US)
  Receive Date: 20140606
  Receipt Date: 20150331
  Transmission Date: 20150720
  Serious: Yes (Hospitalization, Other)
  Sender: FDA-Public Use
  Company Number: US-009507513-1406USA003098

PATIENT
  Sex: Male
  Weight: 131.52 kg

DRUGS (6)
  1. SIMVASTATIN. [Concomitant]
     Active Substance: SIMVASTATIN
     Indication: HYPERCHOLESTEROLAEMIA
     Dosage: 20 MG, QPM
     Route: 048
     Dates: start: 1999
  2. JANUVIA [Suspect]
     Active Substance: SITAGLIPTIN PHOSPHATE
     Indication: TYPE 1 DIABETES MELLITUS
     Dosage: 50 MG, QD
     Route: 048
     Dates: start: 20110317, end: 20121119
  3. LEVOTHYROXINE SODIUM. [Concomitant]
     Active Substance: LEVOTHYROXINE SODIUM
     Indication: POST PROCEDURAL HYPOTHYROIDISM
     Dosage: 200 MICROGRAM, QD
     Route: 048
     Dates: start: 20100514
  4. BYETTA [Suspect]
     Active Substance: EXENATIDE
     Dosage: 10 MICROGRAM, QD
     Route: 048
     Dates: start: 20071108, end: 20100613
  5. VICTOZA [Suspect]
     Active Substance: LIRAGLUTIDE
     Indication: DIABETES MELLITUS
     Dosage: 1.2 MG, UNK
     Route: 058
     Dates: start: 20120707, end: 20130411
  6. AMLODIPINE [Concomitant]
     Active Substance: AMLODIPINE BESYLATE
     Indication: ESSENTIAL HYPERTENSION
     Dosage: 10 MG, QD
     Route: 048
     Dates: start: 1995

REACTIONS (18)
  - Surgery [Unknown]
  - Seroma [Unknown]
  - Product use issue [Unknown]
  - Pancreatic carcinoma [Unknown]
  - Post procedural infection [Unknown]
  - Hyperamylasaemia [Unknown]
  - Pancreatitis [Unknown]
  - Splenectomy [Unknown]
  - Gastrooesophageal reflux disease [Unknown]
  - Blood chromogranin A increased [Unknown]
  - Myalgia [Unknown]
  - Tachycardia [Unknown]
  - Procedural hypertension [Unknown]
  - Peripancreatic fluid collection [Unknown]
  - Thyroid neoplasm [Unknown]
  - Pancreatectomy [Unknown]
  - Diabetes mellitus inadequate control [Unknown]
  - Renal cyst [Unknown]

NARRATIVE: CASE EVENT DATE: 20130208
